FAERS Safety Report 16498134 (Version 1)
Quarter: 2019Q2

REPORT INFORMATION
  Report Type: Spontaneous
  Country: US (occurrence: US)
  Receive Date: 20190628
  Receipt Date: 20190628
  Transmission Date: 20190711
  Serious: Yes (Congenital Anomaly, Other)
  Sender: FDA-Public Use
  Company Number: US-CELGENEUS-USA-20190608263

PATIENT
  Sex: Female

DRUGS (7)
  1. RED BLOOD CELLS [Concomitant]
     Active Substance: HUMAN RED BLOOD CELL
     Route: 041
     Dates: start: 20190617, end: 20190617
  2. PLATELETS [Concomitant]
     Active Substance: HUMAN PLATELET, ALLOGENIC
     Indication: PANCYTOPENIA
     Route: 041
     Dates: start: 20190613, end: 20190613
  3. FILGRASTIM [Concomitant]
     Active Substance: FILGRASTIM
     Indication: PANCYTOPENIA
     Route: 065
  4. RED BLOOD CELLS [Concomitant]
     Active Substance: HUMAN RED BLOOD CELL
     Indication: PANCYTOPENIA
     Route: 041
     Dates: start: 20190613, end: 20190613
  5. LUPRON [Concomitant]
     Active Substance: LEUPROLIDE ACETATE
     Indication: MENSTRUAL DISORDER
     Route: 065
  6. REVLIMID [Suspect]
     Active Substance: LENALIDOMIDE
     Indication: DIFFUSE LARGE B-CELL LYMPHOMA
     Route: 048
  7. PLATELETS [Concomitant]
     Active Substance: HUMAN PLATELET, ALLOGENIC
     Route: 041
     Dates: start: 20190617, end: 20190617

REACTIONS (1)
  - Human chorionic gonadotropin increased [Unknown]
